FAERS Safety Report 7157258-8 (Version None)
Quarter: 2010Q4

REPORT INFORMATION
  Report Type: 
  Country: None (occurrence: None)
  Receive Date: 20101214
  Receipt Date: 20101203
  Transmission Date: 20110411
  Serious: Yes (Hospitalization)
  Sender: FDA-Public Use
  Company Number: PHHO2010US18457

PATIENT
  Sex: Female

DRUGS (2)
  1. AFINITOR [Suspect]
     Indication: HEAD AND NECK CANCER
     Dosage: UNK
     Route: 048
     Dates: start: 20101025, end: 20101202
  2. CISPLATIN [Concomitant]
     Indication: HEAD AND NECK CANCER
     Dosage: UNK
     Dates: start: 20101025, end: 20101202

REACTIONS (2)
  - GASTROSTOMY TUBE INSERTION [None]
  - ORAL PAIN [None]
